FAERS Safety Report 5418039-6 (Version None)
Quarter: 2007Q3

REPORT INFORMATION
  Report Type: 
  Country: None (occurrence: None)
  Receive Date: 20070815
  Receipt Date: 20070806
  Transmission Date: 20080115
  Serious: Yes (Death)
  Sender: FDA-Public Use
  Company Number: M7002-00006-CLI-US

PATIENT
  Age: 66 Year
  Sex: Female
  Weight: 61 kg

DRUGS (9)
  1. ONTAK [Suspect]
     Indication: HYPERTENSION
     Dosage: 1053 MCG INTRAVENOUS INFUSION INTERMITTENT SINCE 30 JUL 2007 - 07/31/2007
  2. ONTAK [Suspect]
     Indication: PERIPHERAL T-CELL LYMPHOMA UNSPECIFIED
     Dosage: 1053 MCG INTRAVENOUS INFUSION INTERMITTENT SINCE 30 JUL 2007 - 07/31/2007
  3. VINCRISTINE SULFATE [Concomitant]
  4. DOXORUBICIN HCL [Concomitant]
  5. CYTOXAN [Concomitant]
  6. PREDNISONE TAB [Concomitant]
  7. LIPITOR [Concomitant]
  8. LISINOPRIL [Concomitant]
  9. HYDROCHLOROTHIAZIDE [Concomitant]

REACTIONS (1)
  - RHABDOMYOLYSIS [None]
